FAERS Safety Report 22085302 (Version 1)
Quarter: 2023Q1

REPORT INFORMATION
  Report Type: Spontaneous
  Country: US (occurrence: US)
  Receive Date: 20230310
  Receipt Date: 20230310
  Transmission Date: 20230417
  Serious: Yes (Hospitalization)
  Sender: FDA-Public Use
  Company Number: US-PFIZER INC-202300102436

PATIENT
  Age: 46 Year
  Sex: Male

DRUGS (2)
  1. SOLU-MEDROL [Suspect]
     Active Substance: METHYLPREDNISOLONE SODIUM SUCCINATE
     Indication: Mast cell activation syndrome
     Dosage: 60 MG (STEROID TAPER OF 60 MG THEN 55 MG OVER A COURSE OF 12 DAYS)
     Route: 030
     Dates: start: 20230306
  2. SOLU-MEDROL [Suspect]
     Active Substance: METHYLPREDNISOLONE SODIUM SUCCINATE
     Dosage: 55 MG (STEROID TAPER OF 60 MG THEN 55 MG OVER A COURSE OF 12 DAYS)
     Route: 030
     Dates: start: 20230307

REACTIONS (4)
  - Anaphylactic reaction [Recovering/Resolving]
  - Injection site pain [Unknown]
  - Off label use [Unknown]
  - Product administered at inappropriate site [Unknown]

NARRATIVE: CASE EVENT DATE: 20230306
